FAERS Safety Report 18528651 (Version 1)
Quarter: 2020Q4

REPORT INFORMATION
  Report Type: Spontaneous
  Country: US (occurrence: US)
  Receive Date: 20201120
  Receipt Date: 20201120
  Transmission Date: 20210114
  Serious: Yes (Hospitalization, Congenital Anomaly, Other)
  Sender: FDA-Public Use
  Company Number: US-PURDUE-USA-2020-0177723

PATIENT
  Sex: Female

DRUGS (3)
  1. OXYCODONE/ ACETAMINOPHEN TABLETS [Suspect]
     Active Substance: ACETAMINOPHEN\OXYCODONE HYDROCHLORIDE
     Indication: PRODUCT USED FOR UNKNOWN INDICATION
     Dosage: UNKNOWN
     Route: 064
  2. OXYCODONE HCL TABLETS (RHODES 91-490) [Suspect]
     Active Substance: OXYCODONE HYDROCHLORIDE
     Indication: PRODUCT USED FOR UNKNOWN INDICATION
     Dosage: 5 MG, Q6H PRN
     Route: 064
  3. METHADONE [Suspect]
     Active Substance: METHADONE HYDROCHLORIDE
     Indication: PRODUCT USED FOR UNKNOWN INDICATION
     Dosage: 20 MG, TID
     Route: 064

REACTIONS (10)
  - Heart disease congenital [Unknown]
  - Stent placement [Unknown]
  - Amputee [Unknown]
  - Cardiac arrest [Unknown]
  - Foetal exposure during pregnancy [Recovered/Resolved]
  - Cardiac operation [Unknown]
  - Drug withdrawal syndrome neonatal [Unknown]
  - Hypoplastic left heart syndrome [Unknown]
  - Developmental delay [Unknown]
  - Speech disorder developmental [Unknown]
